FAERS Safety Report 8645783 (Version 2)
Quarter: 2013Q1

REPORT INFORMATION
  Report Type: Report from Study
  Country: BR (occurrence: BR)
  Receive Date: 20120702
  Receipt Date: 20130328
  Transmission Date: 20140127
  Serious: Yes (Other)
  Sender: FDA-Public Use
  Company Number: BR-ROCHE-1071235

PATIENT
  Sex: Female
  Weight: 53 kg

DRUGS (10)
  1. ACTEMRA [Suspect]
     Indication: RHEUMATOID ARTHRITIS
     Route: 042
     Dates: start: 201109
  2. ACTEMRA [Suspect]
     Route: 065
     Dates: start: 201112
  3. ACTEMRA [Suspect]
     Route: 065
     Dates: start: 201201
  4. ACTEMRA [Suspect]
     Route: 065
     Dates: start: 201202
  5. ACTEMRA [Suspect]
     Route: 065
     Dates: start: 201203
  6. ACTEMRA [Suspect]
     Route: 065
     Dates: start: 201205
  7. PREDSIM [Concomitant]
     Route: 065
  8. PREDSIM [Concomitant]
     Route: 065
  9. POLARMINE [Concomitant]
  10. PARACETAMOL [Concomitant]

REACTIONS (6)
  - Hypotension [Not Recovered/Not Resolved]
  - White blood cell count decreased [Recovered/Resolved]
  - Tendonitis [Unknown]
  - Weight increased [Not Recovered/Not Resolved]
  - Swelling [Unknown]
  - Arthralgia [Unknown]
